FAERS Safety Report 4732974-3 (Version None)
Quarter: 2005Q3

REPORT INFORMATION
  Report Type: 
  Country: None (occurrence: None)
  Receive Date: 20050725
  Receipt Date: 20040528
  Transmission Date: 20060218
  Serious: Yes (Other)
  Sender: FDA-Public Use
  Company Number: WAES 0406USA00009

PATIENT
  Age: 60 Year
  Sex: Female
  Weight: 76.6579 kg

DRUGS (7)
  1. VIOXX [Suspect]
     Indication: CARPAL TUNNEL SYNDROME
     Dosage: 50 MG/DAILY/PO
     Route: 048
     Dates: start: 20031023, end: 20040528
  2. VIOXX [Suspect]
     Indication: TENDONITIS
     Dosage: 50 MG/DAILY/PO
     Route: 048
     Dates: start: 20031023, end: 20040528
  3. ALLEGRA [Concomitant]
  4. ATIVAN [Concomitant]
  5. DURATUSS [Concomitant]
  6. LIPITOR [Concomitant]
  7. ZOLOFT [Concomitant]

REACTIONS (3)
  - BLOOD PRESSURE INCREASED [None]
  - DRUG INEFFECTIVE [None]
  - FOOT FRACTURE [None]
